FAERS Safety Report 9230324 (Version 1)
Quarter: 2013Q2

REPORT INFORMATION
  Report Type: Spontaneous
  Country: None (occurrence: None)
  Receive Date: 20130411
  Receipt Date: 20130411
  Transmission Date: 20140414
  Serious: Yes (Other)
  Sender: FDA-Public Use
  Company Number: EUS-2013-00148

PATIENT
  Sex: Female

DRUGS (2)
  1. ASPARAGINASE [Suspect]
     Indication: ACUTE LYMPHOCYTIC LEUKAEMIA
  2. CORTICOSTEROID (CORTICOSTEROID NOS) (CORTICOSTEROID NOS) [Concomitant]

REACTIONS (1)
  - Hyperlipidaemia [None]
